FAERS Safety Report 5047771-1 (Version None)
Quarter: 2006Q3

REPORT INFORMATION
  Report Type: 
  Country: None (occurrence: None)
  Receive Date: 20060710
  Receipt Date: 20060710
  Transmission Date: 20061208
  Serious: Yes (Hospitalization)
  Sender: FDA-Public Use
  Company Number: None

PATIENT
  Age: 58 Year
  Sex: Female
  Weight: 81.1939 kg

DRUGS (7)
  1. EPIRUBICIN [Suspect]
     Indication: BREAST CANCER
     Dosage: 90 MG/M2 EVERY 3 WEEKS IV BOLUS
     Route: 040
     Dates: start: 20060210, end: 20060414
  2. CYCLOPHOSPHAMIDE [Suspect]
     Indication: BREAST CANCER
     Dosage: 600 MG /M2 EVERY 3 WEEKS IV DRIP
     Route: 041
     Dates: start: 20060210, end: 20060414
  3. SYNTHROID [Concomitant]
  4. LEVAQUIN [Concomitant]
  5. LORAZEPAM [Concomitant]
  6. COMPAZINE [Concomitant]
  7. TESSALON [Concomitant]

REACTIONS (5)
  - BRONCHITIS [None]
  - FEBRILE NEUTROPENIA [None]
  - HYPOCALCAEMIA [None]
  - NASAL CONGESTION [None]
  - PNEUMONIA [None]
